FAERS Safety Report 4696034-2 (Version None)
Quarter: 2005Q2

REPORT INFORMATION
  Report Type: 
  Country: None (occurrence: None)
  Receive Date: 20050621
  Receipt Date: 20050610
  Transmission Date: 20051028
  Serious: Yes (Life-Threatening, Hospitalization, Other)
  Sender: FDA-Public Use
  Company Number: VN-GLAXOSMITHKLINE-B0384854A

PATIENT
  Age: 40 Year
  Sex: Male

DRUGS (2)
  1. ZENTEL [Suspect]
     Indication: MENINGITIS
     Dosage: 2TAB FOUR TIMES PER DAY
     Dates: start: 20050508
  2. PREDNISOLONE [Concomitant]
     Dosage: .5MG FOUR TIMES PER DAY
     Route: 065
     Dates: start: 20050521, end: 20050527

REACTIONS (3)
  - ERYTHEMA MULTIFORME [None]
  - RASH PAPULAR [None]
  - STEVENS-JOHNSON SYNDROME [None]
